FAERS Safety Report 11164059 (Version 1)
Quarter: 2015Q2

REPORT INFORMATION
  Report Type: Spontaneous
  Country: US (occurrence: US)
  Receive Date: 20150604
  Receipt Date: 20150604
  Transmission Date: 20150821
  Serious: No
  Sender: FDA-Public Use
  Company Number: US-ASTRAZENECA-2015SE49910

PATIENT
  Sex: Female

DRUGS (10)
  1. PRAVACHOL [Suspect]
     Active Substance: PRAVASTATIN SODIUM
     Route: 065
  2. LIPITOR [Suspect]
     Active Substance: ATORVASTATIN CALCIUM
     Route: 065
  3. LORATADINE. [Concomitant]
     Active Substance: LORATADINE
  4. ZOCOR [Suspect]
     Active Substance: SIMVASTATIN
     Route: 065
  5. FISH OIL [Concomitant]
     Active Substance: FISH OIL
  6. CRESTOR [Suspect]
     Active Substance: ROSUVASTATIN CALCIUM
     Route: 048
  7. VITAMIN D [Concomitant]
     Active Substance: CHOLECALCIFEROL
  8. MULTIVITAMIN [Concomitant]
     Active Substance: VITAMINS
  9. ZETIA [Suspect]
     Active Substance: EZETIMIBE
     Indication: BLOOD CHOLESTEROL INCREASED
     Route: 048
     Dates: start: 20150406
  10. VITAMIN B12 [Concomitant]
     Active Substance: CYANOCOBALAMIN

REACTIONS (4)
  - Feeling abnormal [Unknown]
  - Myalgia [Unknown]
  - Fatigue [Unknown]
  - Asthenia [Unknown]
